FAERS Safety Report 6601419-0 (Version None)
Quarter: 2010Q1

REPORT INFORMATION
  Report Type: 
  Country: None (occurrence: None)
  Receive Date: 20100225
  Receipt Date: 20100212
  Transmission Date: 20100710
  Serious: No
  Sender: FDA-Public Use
  Company Number: US-B.I. PHARMACEUTICALS,INC./RIDGEFIELD-2010-BP-01947BP

PATIENT
  Sex: Male

DRUGS (1)
  1. MICARDIS [Suspect]
     Indication: HYPERTENSION
     Dosage: 20 MG
     Route: 048
     Dates: start: 20091210

REACTIONS (5)
  - ERYTHEMA [None]
  - LOCALISED OEDEMA [None]
  - NAIL BED INFLAMMATION [None]
  - PARONYCHIA [None]
  - RASH PAPULAR [None]
